FAERS Safety Report 6291824-7 (Version None)
Quarter: 2009Q3

REPORT INFORMATION
  Report Type: 
  Country: None (occurrence: None)
  Receive Date: 20090729
  Receipt Date: 20090721
  Transmission Date: 20100115
  Serious: Yes (Death)
  Sender: FDA-Public Use
  Company Number: 2008AL011634

PATIENT
  Age: 96 Year
  Sex: Male

DRUGS (5)
  1. DIGOXIN [Suspect]
     Indication: CARDIAC DISORDER
     Dosage: 0.125MG, DAILY, PO
     Route: 048
     Dates: start: 20080101, end: 20080301
  2. PROTONIX [Concomitant]
  3. KLOR-CON [Concomitant]
  4. LASIX [Concomitant]
  5. ZAROXOLYN [Concomitant]

REACTIONS (3)
  - ASTHENIA [None]
  - CARDIAC FAILURE [None]
  - GAIT DISTURBANCE [None]
